FAERS Safety Report 24888531 (Version 1)
Quarter: 2025Q1

REPORT INFORMATION
  Report Type: Spontaneous
  Country: US (occurrence: None)
  Receive Date: 20250124
  Receipt Date: 20250124
  Transmission Date: 20250409
  Serious: Yes (Hospitalization)
  Sender: FDA-CTU
  Company Number: None

PATIENT
  Age: 73 Year
  Sex: Female

DRUGS (1)
  1. VENCLEXTA [Suspect]
     Active Substance: VENETOCLAX
     Indication: Acute myeloid leukaemia
     Dosage: 200MG QD ORAL
     Route: 048

REACTIONS (7)
  - Febrile neutropenia [None]
  - Therapy interrupted [None]
  - Liver function test increased [None]
  - Thirst [None]
  - Blood glucose increased [None]
  - Fatigue [None]
  - Nausea [None]
